FAERS Safety Report 24525385 (Version 1)
Quarter: 2024Q4

REPORT INFORMATION
  Report Type: Spontaneous
  Country: US (occurrence: US)
  Receive Date: 20241019
  Receipt Date: 20241019
  Transmission Date: 20250115
  Serious: No
  Sender: SANOFI AVENTIS
  Company Number: US-SA-2024SA296924

PATIENT
  Sex: Female

DRUGS (1)
  1. DUPIXENT [Suspect]
     Active Substance: DUPILUMAB
     Indication: Dermatitis atopic
     Dosage: 300 MG, QOW
     Route: 058
     Dates: start: 20240910

REACTIONS (10)
  - Loss of personal independence in daily activities [Unknown]
  - Dyspnoea [Unknown]
  - Pain [Unknown]
  - Influenza [Unknown]
  - Sluggishness [Unknown]
  - Fatigue [Unknown]
  - Pruritus [Unknown]
  - Paraesthesia [Unknown]
  - Abdominal distension [Unknown]
  - Weight increased [Unknown]

NARRATIVE: CASE EVENT DATE: 20240101
